FAERS Safety Report 10668389 (Version 1)
Quarter: 2014Q4

REPORT INFORMATION
  Report Type: Spontaneous
  Country: None (occurrence: None)
  Receive Date: 20141217
  Receipt Date: 20141217
  Transmission Date: 20150529
  Serious: No
  Sender: FDA-Public Use
  Company Number: 2014CT000158

PATIENT
  Age: 41 Year
  Sex: Female

DRUGS (8)
  1. METFORMIN [Concomitant]
     Active Substance: METFORMIN HYDROCHLORIDE
  2. VITAMIN D [Concomitant]
     Active Substance: CHOLECALCIFEROL
  3. KORLYM [Suspect]
     Active Substance: MIFEPRISTONE
     Indication: PITUITARY-DEPENDENT CUSHING^S SYNDROME
     Route: 048
     Dates: start: 20131029
  4. LISINOPRIL AND HYDROCHLOROTHIAZIDE [Concomitant]
     Active Substance: HYDROCHLOROTHIAZIDE\LISINOPRIL
  5. RISPERDAL [Concomitant]
     Active Substance: RISPERIDONE
  6. LEVOTHYROXINE [Concomitant]
     Active Substance: LEVOTHYROXINE
  7. ASPIRIN. [Concomitant]
     Active Substance: ASPIRIN
  8. BYDUREON [Concomitant]
     Active Substance: EXENATIDE

REACTIONS (4)
  - Uterine leiomyoma [None]
  - Hyperhidrosis [None]
  - Amenorrhoea [None]
  - Weight decreased [None]

NARRATIVE: CASE EVENT DATE: 201311
